FAERS Safety Report 10090109 (Version 1)
Quarter: 2014Q2

REPORT INFORMATION
  Report Type: Spontaneous
  Country: US (occurrence: None)
  Receive Date: 20140417
  Receipt Date: 20140417
  Transmission Date: 20141212
  Serious: Yes (Other)
  Sender: FDA-Public Use
  Company Number: 201404017

PATIENT
  Age: 46 Year
  Sex: 0

DRUGS (1)
  1. TESTIM (TESTOSTERONE) [Suspect]
     Dates: start: 201002

REACTIONS (5)
  - Myocardial infarction [None]
  - Pain [None]
  - Fear [None]
  - Economic problem [None]
  - Unevaluable event [None]
